FAERS Safety Report 25984251 (Version 5)
Quarter: 2025Q4

REPORT INFORMATION
  Report Type: Spontaneous
  Country: EU (occurrence: EU)
  Receive Date: 20251031
  Receipt Date: 20251221
  Transmission Date: 20260118
  Serious: Yes (Hospitalization)
  Sender: MERCK SHARP & DOHME LLC
  Company Number: None

PATIENT
  Age: 55 Year
  Sex: Male

DRUGS (29)
  1. DAPTOMYCIN [Suspect]
     Active Substance: DAPTOMYCIN
     Indication: Bacterial infection
     Dosage: DOSE DESCRIPTION : 1 GRAM?CONCENTRATION: 1 GRAM
     Route: 042
     Dates: start: 20230211, end: 20230306
  2. CILASTATIN SODIUM\IMIPENEM [Suspect]
     Active Substance: CILASTATIN SODIUM\IMIPENEM
     Indication: Bacterial infection
     Dosage: 800 MG, QD, 500 MG/500 MG
     Route: 042
     Dates: start: 20230114, end: 20230208
  3. CASPOFUNGIN ACETATE [Suspect]
     Active Substance: CASPOFUNGIN ACETATE
     Indication: Fungal infection
     Dosage: 70 MG
     Route: 042
     Dates: start: 20230126
  4. LOVENOX [Suspect]
     Active Substance: ENOXAPARIN SODIUM
     Indication: Constipation
     Dosage: DOSE DESCRIPTION : 4000 INTERNATIONAL UNIT
     Route: 058
     Dates: start: 20230210
  5. LOVENOX [Suspect]
     Active Substance: ENOXAPARIN SODIUM
     Indication: Constipation
     Dosage: DOSE DESCRIPTION : 4000 INTERNATIONAL UNIT
     Route: 058
     Dates: start: 20230210
  6. LEUCOVORIN CALCIUM [Suspect]
     Active Substance: LEUCOVORIN CALCIUM
     Indication: Prophylaxis
     Dosage: 2 DF, 0.5 WEEK (A TAB EVERY MONDAY AND THURSDAY)
     Route: 048
     Dates: start: 20230102
  7. BACTRIM [Suspect]
     Active Substance: SULFAMETHOXAZOLE\TRIMETHOPRIM
     Indication: Bacterial infection
     Dosage: DOSE DESCRIPTION : 400 MILLIGRAM, WHEN (1 DF, 1 TAB IN THE MORNING)?DAILY DOSE : 400 MILLIGRAM?RE...
     Route: 048
     Dates: start: 20230106, end: 20230303
  8. PANTOPRAZOLE [Suspect]
     Active Substance: PANTOPRAZOLE
     Indication: Constipation
     Dosage: 20 MG
     Route: 048
     Dates: start: 20230106
  9. VINCRISTINE SULFATE [Suspect]
     Active Substance: VINCRISTINE SULFATE
     Indication: Diffuse large B-cell lymphoma
     Dosage: UNKNOWN, (1 CURE)
     Route: 065
     Dates: start: 20221227
  10. VINCRISTINE SULFATE [Suspect]
     Active Substance: VINCRISTINE SULFATE
     Indication: Diffuse large B-cell lymphoma
     Dosage: UNK (1 TREATMENT, 1 COURSE)
     Route: 065
     Dates: start: 20221227
  11. NALOXEGOL OXALATE [Suspect]
     Active Substance: NALOXEGOL OXALATE
     Indication: Constipation
     Dosage: TIME INTERVAL: AS NECESSARY: DOSE DESCRIPTION : 25 MILLIGRAM, PRN (IF NECESSARY)?CONCENTRATION: 2...
     Route: 048
     Dates: start: 20230211
  12. ARANESP [Suspect]
     Active Substance: DARBEPOETIN ALFA
     Indication: Anaemia
     Dosage: DOSE DESCRIPTION : 1 DOSAGE FORM, QW (300 MICROGRAM PER GRAM)?DAILY DOSE : 0.143 DOSAGE FORM?REGI...
     Route: 058
     Dates: start: 20230213
  13. ACETAMINOPHEN [Suspect]
     Active Substance: ACETAMINOPHEN
     Indication: Pain
     Dosage: 1 DF, EVERY 6 HOURS (1 TABLET EVERY 6 HOURS, MAXIMUM 3 TABLETS PER DAY)
     Route: 048
     Dates: start: 20230211
  14. CYCLOPHOSPHAMIDE [Suspect]
     Active Substance: CYCLOPHOSPHAMIDE
     Indication: Diffuse large B-cell lymphoma
     Dosage: 1 COURSE
     Route: 065
     Dates: start: 20221227
  15. MORPHINE SULFATE [Suspect]
     Active Substance: MORPHINE SULFATE
     Indication: Pain
     Dosage: DOSE DESCRIPTION : 30 MG, BID (1 TAB SKENAN LP30MG EVERY 12 HOURS)?DAILY DOSE : 60 MILLIGRAM?REGI...
     Route: 048
     Dates: start: 20230210, end: 20230218
  16. MORPHINE SULFATE [Suspect]
     Active Substance: MORPHINE SULFATE
     Indication: Pain
     Dosage: 1 DF, Q12H 1 TABLET SKENAN LP30MG EVERY 12H
     Route: 048
     Dates: start: 20230210
  17. CEFTRIAXONE [Suspect]
     Active Substance: CEFTRIAXONE
     Indication: Bacterial infection
     Dosage: 2 GRAM,QD1G MORNING AND EVENING
     Route: 048
     Dates: start: 20230209
  18. METRONIDAZOLE [Suspect]
     Active Substance: METRONIDAZOLE
     Indication: Bacterial infection
     Dosage: 1500 MG, QD (500 MG MORNING, NOON AND EVENING)
     Route: 048
     Dates: start: 20230209, end: 20230303
  19. ACUPAN [Suspect]
     Active Substance: NEFOPAM HYDROCHLORIDE
     Indication: Pain
     Dosage: 1 DOSAGE FORM, Q4H (ONE AMPOULE EVERY 4 HOURS IF PAIN, AMPOULE)
     Route: 048
     Dates: start: 20230106, end: 20230302
  20. ACUPAN [Suspect]
     Active Substance: NEFOPAM HYDROCHLORIDE
     Indication: Pain
     Dosage: UNK, (ONE AMPOULE EVERY 4 HOURS IF PAIN)
     Route: 048
     Dates: start: 20230106, end: 20230302
  21. CIPROFLOXACIN [Suspect]
     Active Substance: CIPROFLOXACIN
     Indication: Diffuse large B-cell lymphoma
     Dosage: UNK
     Route: 065
     Dates: start: 20230203, end: 20230208
  22. CIPROFLOXACIN [Suspect]
     Active Substance: CIPROFLOXACIN
     Indication: Bacterial infection
     Dosage: 400 MILLIGRAM, QD (1 DF, 1 TAB IN THE MORNING)
     Route: 065
     Dates: start: 20230203, end: 20230208
  23. DOXORUBICIN [Suspect]
     Active Substance: DOXORUBICIN
     Indication: Diffuse large B-cell lymphoma
     Dosage: 1 COURSE
     Route: 065
     Dates: start: 20221227
  24. VALACYCLOVIR HYDROCHLORIDE [Suspect]
     Active Substance: VALACYCLOVIR HYDROCHLORIDE
     Indication: Bacterial infection
     Dosage: 1000 MG, DAILY, 500 MG MORNING AND EVENING
     Route: 048
     Dates: start: 20230106
  25. RITUXIMAB [Suspect]
     Active Substance: RITUXIMAB
     Indication: Diffuse large B-cell lymphoma
     Dosage: UNK (1 COURSE)
     Route: 065
     Dates: start: 20221227
  26. ALPRAZOLAM [Suspect]
     Active Substance: ALPRAZOLAM
     Indication: Anxiety
     Dosage: 1 DF
     Route: 048
     Dates: start: 20230106, end: 20230209
  27. ALPRAZOLAM [Suspect]
     Active Substance: ALPRAZOLAM
     Indication: Anxiety
     Dosage: 0.25 MG (1 TAB 0.25 MG IF ANGUISH)
     Route: 048
     Dates: start: 20230106, end: 20230209
  28. AMITRIPTYLINE HYDROCHLORIDE [Suspect]
     Active Substance: AMITRIPTYLINE HYDROCHLORIDE
     Indication: Pain
     Dosage: 35 DROPS, DAILY, 1/12 MILLILITER PER DAY 35 DROPS, 5 DROPS MORNING, 10 DROPS MIDDAY AND EVENING
     Route: 048
     Dates: start: 20221210
  29. SKENAN [Suspect]
     Active Substance: MORPHINE SULFATE
     Indication: Pain
     Dosage: 1 DF, Q12H 1 TABLET SKENAN LP 30 MG EVERY 12H
     Route: 048
     Dates: start: 20230210, end: 20230218

REACTIONS (1)
  - Agranulocytosis [Recovered/Resolved]

NARRATIVE: CASE EVENT DATE: 20230201
